FAERS Safety Report 9820655 (Version 1)
Quarter: 2013Q4

REPORT INFORMATION
  Report Type: Spontaneous
  Country: US (occurrence: None)
  Receive Date: 20131028
  Receipt Date: 20131028
  Transmission Date: 20140711
  Serious: No
  Sender: FDA-Public Use
  Company Number: 2013US001790

PATIENT
  Age: 59 Year
  Sex: Male
  Weight: 95 kg

DRUGS (2)
  1. ICLUSIG [Suspect]
     Indication: CHROMOSOME ANALYSIS ABNORMAL
     Dosage: 45 MG, QD, ORAL
     Route: 048
     Dates: start: 20130525
  2. ICLUSIG [Suspect]
     Indication: ACUTE LYMPHOCYTIC LEUKAEMIA
     Dosage: 45 MG, QD, ORAL
     Route: 048
     Dates: start: 20130525

REACTIONS (2)
  - Muscle tightness [None]
  - Dyspnoea [None]
